FAERS Safety Report 9423798 (Version 1)
Quarter: 2013Q3

REPORT INFORMATION
  Report Type: Spontaneous
  Country: US (occurrence: US)
  Receive Date: 20130729
  Receipt Date: 20130729
  Transmission Date: 20140515
  Serious: Yes (Hospitalization, Other)
  Sender: FDA-Public Use
  Company Number: US-AMGEN-USASP2013052395

PATIENT
  Age: 67 Year
  Sex: Male

DRUGS (1)
  1. ENBREL [Suspect]
     Indication: PSORIATIC ARTHROPATHY
     Dosage: 25 MG,WHENEVER FEELS A FLARE, ABOUT EVERY 3 OR 4 WEEKS
     Route: 065
     Dates: start: 20021115

REACTIONS (2)
  - Meningitis aseptic [Recovering/Resolving]
  - Condition aggravated [Not Recovered/Not Resolved]
